FAERS Safety Report 8166368-8 (Version None)
Quarter: 2012Q1

REPORT INFORMATION
  Report Type: 
  Country: None (occurrence: None)
  Receive Date: 20120227
  Receipt Date: 20110620
  Transmission Date: 20120608
  Serious: No
  Sender: FDA-Public Use
  Company Number: US-MYLANLABS-2011S1012977

PATIENT
  Age: 41 Year
  Sex: Male

DRUGS (1)
  1. AMNESTEEM [Suspect]
     Route: 048

REACTIONS (1)
  - DRY SKIN [None]
